FAERS Safety Report 5955434-0 (Version None)
Quarter: 2008Q4

REPORT INFORMATION
  Report Type: 
  Country: None (occurrence: None)
  Receive Date: 20081117
  Receipt Date: 20081104
  Transmission Date: 20090506
  Serious: Yes (Other)
  Sender: FDA-Public Use
  Company Number: US-ROCHE-594939

PATIENT
  Sex: Male

DRUGS (4)
  1. PEG-INTERFERON ALFA 2A (RO 25-8310) [Suspect]
     Indication: HEPATITIS C
     Dosage: DOSE REPORTED AS 25.7143MCG (18-)
     Route: 058
     Dates: start: 20080905, end: 20081016
  2. RIBAVIRIN [Suspect]
     Indication: HEPATITIS C
     Route: 048
     Dates: start: 20080905, end: 20081022
  3. BLINDED VX-950 [Suspect]
     Indication: HEPATITIS C
     Route: 048
     Dates: start: 20080905, end: 20081022
  4. MULTI-VITAMIN [Concomitant]

REACTIONS (1)
  - CONVULSION [None]
